FAERS Safety Report 9859971 (Version 3)
Quarter: 2014Q1

REPORT INFORMATION
  Report Type: Spontaneous
  Country: NO (occurrence: NO)
  Receive Date: 20140131
  Receipt Date: 20140224
  Transmission Date: 20141002
  Serious: Yes (Death, Other)
  Sender: FDA-Public Use
  Company Number: NO-GILEAD-2014-0093214

PATIENT
  Sex: Male

DRUGS (7)
  1. TRUVADA [Suspect]
     Indication: HIV INFECTION
     Dosage: UNK
     Route: 048
  2. NORVIR [Suspect]
     Indication: HIV INFECTION
     Route: 048
  3. REYATAZ [Suspect]
     Indication: HIV INFECTION
     Route: 048
  4. SAROTEX [Concomitant]
     Route: 048
  5. NEURONTIN [Concomitant]
     Route: 048
  6. ESCITALOPRAM [Concomitant]
     Route: 048
  7. ESCITALOPRAM [Concomitant]
     Route: 048

REACTIONS (1)
  - Circulatory collapse [Fatal]
